FAERS Safety Report 23988962 (Version 1)
Quarter: 2024Q2

REPORT INFORMATION
  Report Type: Spontaneous
  Country: BG (occurrence: BG)
  Receive Date: 20240619
  Receipt Date: 20240619
  Transmission Date: 20240716
  Serious: Yes (Hospitalization, Other)
  Sender: FDA-Public Use
  Company Number: BG-CPL-004262

PATIENT
  Age: 59 Year
  Sex: Female

DRUGS (6)
  1. NEBIVOLOL [Suspect]
     Active Substance: NEBIVOLOL
     Indication: Hypertension
     Dosage: 5 MG ONCE DAILY FOR 1 YEAR
  2. BISOPROLOL FUMARATE [Suspect]
     Active Substance: BISOPROLOL FUMARATE
     Indication: Hypertension
     Dosage: 5 MG ONCE DAILY ADMINISTRATED FOR 1 YEAR,
     Dates: start: 2021
  3. CANDESARTAN CILEXETIL W/HYDROCHLORO [Concomitant]
     Indication: Hypertension
     Dosage: 16 MG/12.5 MG ONCE IN THE ?MORNING
  4. AMLODIPINE [Concomitant]
     Active Substance: AMLODIPINE BESYLATE
     Indication: Hypertension
     Dosage: 5 MG ONCE IN THE EVENING
  5. CLOPIDOGREL [Concomitant]
     Active Substance: CLOPIDOGREL BISULFATE
     Indication: Hypertension
     Dosage: 75 MG ONCE IN THE EVENING.
  6. ESOMEPRAZOLE [Concomitant]
     Active Substance: ESOMEPRAZOLE
     Indication: Duodenal ulcer
     Dosage: ON AN EMPTY STOMACH ONCE DAILY IN THE MORNING

REACTIONS (1)
  - Malignant melanoma [Unknown]
